FAERS Safety Report 6870043-7 (Version None)
Quarter: 2010Q3

REPORT INFORMATION
  Report Type: 
  Country: None (occurrence: None)
  Receive Date: 20100722
  Receipt Date: 20100716
  Transmission Date: 20110219
  Serious: Yes (Hospitalization)
  Sender: FDA-Public Use
  Company Number: MX-PFIZER INC-2006106917

PATIENT
  Age: 61 Year
  Sex: Female
  Weight: 56 kg

DRUGS (7)
  1. SUNITINIB MALATE [Suspect]
     Indication: RENAL CANCER
     Dosage: 50 MG, 1X/DAY
     Route: 048
     Dates: start: 20060818, end: 20060914
  2. SUNITINIB MALATE [Suspect]
     Dosage: 50 MG, 1X/DAY
     Route: 048
     Dates: start: 20060928, end: 20061004
  3. SUNITINIB MALATE [Suspect]
     Dosage: 50 MG, 1X/DAY
     Route: 048
     Dates: start: 20061011
  4. GLIBENCLAMIDE [Concomitant]
     Route: 048
     Dates: start: 20050101
  5. CHLORTHALIDONE [Concomitant]
     Route: 048
     Dates: start: 20030101
  6. LOPERAMIDE [Concomitant]
     Route: 042
     Dates: start: 20060906, end: 20060913
  7. PARACETAMOL [Concomitant]
     Route: 042
     Dates: start: 20060906, end: 20060913

REACTIONS (2)
  - CONDITION AGGRAVATED [None]
  - ENTEROCUTANEOUS FISTULA [None]
